FAERS Safety Report 6066245 (Version 1)
Quarter: 2020Q3

REPORT INFORMATION
  Report Type: Spontaneous
  Country: AU (occurrence: None)
  Receive Date: 20060601
  Receipt Date: 20060601
  Transmission Date: 20201104
  Serious: Yes (Life-Threatening)
  Sender: FDA-Public Use
  Company Number: 14070

PATIENT
  Age: 18 Year
  Sex: Female
  Weight: 45 kg

DRUGS (11)
  1. FENTANYL. [Suspect]
     Active Substance: FENTANYL
     Dosage: 100 MICROGRAM ONCE IV
     Route: 042
     Dates: start: 20041003
  2. EPILIM [Concomitant]
  3. MORPHINE [Suspect]
     Active Substance: MORPHINE
     Dosage: 3 MG ONCE IV
     Route: 042
     Dates: start: 20041003
  4. METOCLOPRAMIDE HYDROCHLORIDE. [Concomitant]
     Active Substance: METOCLOPRAMIDE HYDROCHLORIDE
  5. TEGRETOL [Concomitant]
     Active Substance: CARBAMAZEPINE
  6. CLOBAZAM [Concomitant]
  7. FLUVOXAMINE MALEATE. [Concomitant]
     Active Substance: FLUVOXAMINE MALEATE
  8. MIDAZOLAM HYDROCHLORIDE. [Suspect]
     Active Substance: MIDAZOLAM HYDROCHLORIDE
     Dosage: 1.5 MG ONCE IV
     Route: 042
     Dates: start: 20041003
  9. PROPOFOL. [Suspect]
     Active Substance: PROPOFOL
     Dosage: 80 MG ONCE IV
     Route: 042
     Dates: start: 20041003
  10. PARECOXIB SODIUM. [Suspect]
     Active Substance: PARECOXIB SODIUM
     Dosage: 40 MG ONCE IV
     Route: 042
     Dates: start: 20041003
  11. BACLOFEN. [Concomitant]
     Active Substance: BACLOFEN

REACTIONS (5)
  - Rash [None]
  - Swelling face [None]
  - Anaesthetic complication [None]
  - Respiratory depression [None]
  - Apnoeic attack [None]

NARRATIVE: CASE EVENT DATE: 20041003
